FAERS Safety Report 18043068 (Version 5)
Quarter: 2023Q1

REPORT INFORMATION
  Report Type: Other
  Country: CA (occurrence: CA)
  Receive Date: 20200720
  Receipt Date: 20230113
  Transmission Date: 20230418
  Serious: Yes (Hospitalization, Other)
  Sender: FDA-Public Use
  Company Number: None

PATIENT
  Age: 50 Year
  Sex: Female

DRUGS (46)
  1. AMITRIPTYLINE HYDROCHLORIDE [Interacting]
     Active Substance: AMITRIPTYLINE HYDROCHLORIDE
     Indication: Complex regional pain syndrome
     Route: 065
  2. AMLODIPINE BESYLATE [Interacting]
     Active Substance: AMLODIPINE BESYLATE
     Indication: Complex regional pain syndrome
     Route: 065
  3. MYCOPHENOLATE MOFETIL [Interacting]
     Active Substance: MYCOPHENOLATE MOFETIL
     Indication: Complex regional pain syndrome
     Route: 065
  4. MONTELUKAST SODIUM [Interacting]
     Active Substance: MONTELUKAST SODIUM
     Indication: Complex regional pain syndrome
     Dosage: NOT SPECIFIED
     Route: 065
  5. SPIRONOLACTONE [Interacting]
     Active Substance: SPIRONOLACTONE
     Indication: Complex regional pain syndrome
     Route: 065
  6. PREGABALIN [Interacting]
     Active Substance: PREGABALIN
     Indication: Complex regional pain syndrome
     Route: 065
  7. ANAKINRA [Interacting]
     Active Substance: ANAKINRA
     Indication: Complex regional pain syndrome
     Route: 065
  8. BUMETANIDE [Interacting]
     Active Substance: BUMETANIDE
     Indication: Complex regional pain syndrome
     Route: 065
  9. APREMILAST [Interacting]
     Active Substance: APREMILAST
     Indication: Complex regional pain syndrome
     Route: 065
  10. CAPSAICIN [Interacting]
     Active Substance: CAPSAICIN
     Indication: Complex regional pain syndrome
     Dosage: TOPICAL
  11. CIMETIDINE [Interacting]
     Active Substance: CIMETIDINE
     Indication: Complex regional pain syndrome
     Dosage: NOT SPECIFIED
     Route: 065
  12. CLONIDINE [Interacting]
     Active Substance: CLONIDINE
     Indication: Complex regional pain syndrome
     Dosage: NOT SPECIFIED
     Route: 065
  13. DILTIAZEM [Interacting]
     Active Substance: DILTIAZEM
     Indication: Complex regional pain syndrome
     Dosage: NOT SPECIFIED
     Route: 065
  14. ETANERCEPT [Interacting]
     Active Substance: ETANERCEPT
     Indication: Complex regional pain syndrome
     Route: 065
  15. HYDROXYCHLOROQUINE SULFATE [Interacting]
     Active Substance: HYDROXYCHLOROQUINE SULFATE
     Indication: Complex regional pain syndrome
     Route: 065
  16. IBUDILAST [Interacting]
     Active Substance: IBUDILAST
     Indication: Complex regional pain syndrome
     Route: 065
  17. KETAMINE [Interacting]
     Active Substance: KETAMINE
     Indication: Complex regional pain syndrome
     Dosage: TOPICAL
     Route: 048
  18. LIDOCAINE [Interacting]
     Active Substance: LIDOCAINE
     Indication: Complex regional pain syndrome
     Dosage: OINTMENT TOPICAL
     Route: 042
  19. LITHIUM CARBONATE [Interacting]
     Active Substance: LITHIUM CARBONATE
     Indication: Complex regional pain syndrome
     Dosage: NOT SPECIFIED
     Route: 065
  20. MAGNESIUM [Interacting]
     Active Substance: MAGNESIUM
     Indication: Complex regional pain syndrome
     Route: 065
  21. MEMANTINE [Interacting]
     Active Substance: MEMANTINE
     Indication: Complex regional pain syndrome
     Route: 065
  22. METOPROLOL TARTRATE [Interacting]
     Active Substance: METOPROLOL TARTRATE
     Indication: Complex regional pain syndrome
     Route: 065
  23. MEXILETINE [Interacting]
     Active Substance: MEXILETINE
     Indication: Complex regional pain syndrome
     Route: 065
  24. ACETYLCYSTEINE [Interacting]
     Active Substance: ACETYLCYSTEINE
     Indication: Complex regional pain syndrome
     Route: 065
  25. NALTREXONE HYDROCHLORIDE [Interacting]
     Active Substance: NALTREXONE HYDROCHLORIDE
     Indication: Complex regional pain syndrome
     Dosage: 1 EVERY 24 HOURS
     Route: 065
  26. PENTOXIFYLLINE [Interacting]
     Active Substance: PENTOXIFYLLINE
     Indication: Complex regional pain syndrome
     Route: 065
  27. PREDNISONE [Interacting]
     Active Substance: PREDNISONE
     Indication: Complex regional pain syndrome
     Route: 065
  28. VITAMIN B2 [Interacting]
     Active Substance: RIBOFLAVIN
     Indication: Complex regional pain syndrome
     Dosage: TABLET
     Route: 065
  29. PALMIDROL [Interacting]
     Active Substance: PALMIDROL
     Indication: Complex regional pain syndrome
  30. VITAMIN C [Interacting]
     Active Substance: ASCORBIC ACID
     Indication: Complex regional pain syndrome
     Route: 065
  31. TRAZODONE [Concomitant]
     Active Substance: TRAZODONE HYDROCHLORIDE
     Indication: Insomnia
     Route: 065
  32. CALCITONIN [Concomitant]
     Active Substance: CALCITONIN
     Indication: Complex regional pain syndrome
     Dosage: NOT SPECIFIED
     Route: 065
  33. EZETIMIBE [Concomitant]
     Active Substance: EZETIMIBE
     Indication: Hyperlipidaemia
     Route: 065
  34. LIDOCAINE HYDROCHLORIDE [Interacting]
     Active Substance: LIDOCAINE HYDROCHLORIDE
     Indication: Complex regional pain syndrome
     Dosage: TOPICAL
  35. RIBOFLAVIN [Interacting]
     Active Substance: RIBOFLAVIN
     Indication: Complex regional pain syndrome
  36. CALCITONIN [Interacting]
     Active Substance: CALCITONIN
     Indication: Complex regional pain syndrome
  37. MAGNESIUM GLUCONATE [Interacting]
     Active Substance: MAGNESIUM GLUCONATE
     Indication: Complex regional pain syndrome
  38. ANAKINRA [Concomitant]
     Active Substance: ANAKINRA
     Route: 058
  39. RITUXIMAB [Suspect]
     Active Substance: RITUXIMAB
  40. KETAMINE [Interacting]
     Active Substance: KETAMINE
     Indication: Complex regional pain syndrome
     Route: 048
  41. KETAMINE [Interacting]
     Active Substance: KETAMINE
     Indication: Complex regional pain syndrome
     Route: 042
  42. PREDNISONE [Interacting]
     Active Substance: PREDNISONE
     Indication: Complex regional pain syndrome
     Route: 065
  43. PREDNISONE [Interacting]
     Active Substance: PREDNISONE
     Indication: Complex regional pain syndrome
     Dosage: 1 EVERY 24 HOURS
     Route: 065
  44. PREDNISONE [Interacting]
     Active Substance: PREDNISONE
     Indication: Complex regional pain syndrome
     Dosage: 1 EVERY 24 HOURS
     Route: 065
  45. PREDNISONE [Interacting]
     Active Substance: PREDNISONE
     Indication: Complex regional pain syndrome
     Dosage: 1 EVERY 24 HOURS
     Route: 065
  46. PREDNISONE [Interacting]
     Active Substance: PREDNISONE
     Indication: Complex regional pain syndrome
     Dosage: 1 EVERY 24 HOURS
     Route: 065

REACTIONS (21)
  - Weight increased [Recovered/Resolved]
  - Bone density decreased [Recovered/Resolved]
  - Body tinea [Recovered/Resolved]
  - Skin disorder [Recovered/Resolved]
  - Purpura [Recovered/Resolved]
  - Poor quality sleep [Recovered/Resolved]
  - Oral herpes [Recovered/Resolved]
  - Insomnia [Recovered/Resolved]
  - Inhibitory drug interaction [Unknown]
  - Infection susceptibility increased [Recovered/Resolved]
  - Impaired work ability [Recovered/Resolved]
  - Impaired quality of life [Recovered/Resolved]
  - Hypertension [Recovered/Resolved]
  - Hyperlipidaemia [Recovered/Resolved]
  - Herpes zoster [Recovered/Resolved]
  - Glucose tolerance impaired [Recovered/Resolved]
  - Fatigue [Recovered/Resolved]
  - Drug ineffective [Unknown]
  - Contusion [Recovered/Resolved]
  - Cellulitis [Recovered/Resolved]
  - Cataract [Recovered/Resolved]
